FAERS Safety Report 8062279-7 (Version None)
Quarter: 2012Q1

REPORT INFORMATION
  Report Type: 
  Country: None (occurrence: None)
  Receive Date: 20120113
  Receipt Date: 20120105
  Transmission Date: 20120608
  Serious: Yes (Hospitalization)
  Sender: FDA-Public Use
  Company Number: AUR-APL-2012-00229

PATIENT
  Age: 48 Year
  Sex: Female

DRUGS (1)
  1. FLUOXETINE [Suspect]
     Indication: PRODUCT USED FOR UNKNOWN INDICATION
     Dosage: (20 MG), ORAL
     Route: 048
     Dates: start: 20111107, end: 20111220

REACTIONS (4)
  - PALPITATIONS [None]
  - EXTRASYSTOLES [None]
  - FALL [None]
  - ARRHYTHMIA [None]
